FAERS Safety Report 7519438-9 (Version None)
Quarter: 2011Q2

REPORT INFORMATION
  Report Type: 
  Country: None (occurrence: None)
  Receive Date: 20110602
  Receipt Date: 20110531
  Transmission Date: 20111010
  Serious: Yes (Other)
  Sender: FDA-Public Use
  Company Number: NO-PFIZER INC-2011118084

PATIENT
  Age: 52 Year
  Sex: Female

DRUGS (1)
  1. NEURONTIN [Suspect]
     Indication: MIGRAINE
     Dosage: UNK

REACTIONS (3)
  - OROPHARYNGEAL PAIN [None]
  - RASH PRURITIC [None]
  - GLOSSODYNIA [None]
